FAERS Safety Report 21937779 (Version 1)
Quarter: 2023Q1

REPORT INFORMATION
  Report Type: Spontaneous
  Country: US (occurrence: US)
  Receive Date: 20230201
  Receipt Date: 20230201
  Transmission Date: 20230417
  Serious: Yes (Other)
  Sender: FDA-Public Use
  Company Number: US-PFIZER INC-202300041400

PATIENT
  Age: 69 Year
  Sex: Female

DRUGS (1)
  1. PAXLOVID [Suspect]
     Active Substance: NIRMATRELVIR\RITONAVIR
     Indication: COVID-19 treatment
     Dosage: 30 (20 X150MG AND 10 X100MG TAB), 5 DAY SUPPLY
     Dates: start: 20220908

REACTIONS (11)
  - Cataract [Unknown]
  - Tongue disorder [Recovering/Resolving]
  - Dysgeusia [Recovering/Resolving]
  - Glossodynia [Recovering/Resolving]
  - Oral pain [Recovering/Resolving]
  - Ageusia [Recovering/Resolving]
  - Vomiting [Unknown]
  - Fall [Unknown]
  - Dizziness [Unknown]
  - Feeling abnormal [Unknown]
  - Headache [Unknown]
